FAERS Safety Report 7265117-5 (Version None)
Quarter: 2011Q1

REPORT INFORMATION
  Report Type: 
  Country: None (occurrence: None)
  Receive Date: 20110119
  Receipt Date: 20110105
  Transmission Date: 20110831
  Serious: Yes (Other)
  Sender: FDA-Public Use
  Company Number: 2011SP001039

PATIENT
  Age: 18 Year
  Sex: Male

DRUGS (4)
  1. ABILIFY [Concomitant]
  2. LAMICTAL [Concomitant]
  3. SAPHRIS [Suspect]
     Indication: PRODUCT USED FOR UNKNOWN INDICATION
     Dosage: SL
     Route: 060
     Dates: start: 20101001, end: 20110107
  4. ZYPREXA [Concomitant]

REACTIONS (2)
  - WHITE BLOOD CELL COUNT DECREASED [None]
  - INFLUENZA LIKE ILLNESS [None]
